FAERS Safety Report 22325275 (Version 4)
Quarter: 2023Q2

REPORT INFORMATION
  Report Type: Report from Study
  Country: US (occurrence: US)
  Receive Date: 20230516
  Receipt Date: 20230612
  Transmission Date: 20230721
  Serious: No
  Sender: FDA-Public Use
  Company Number: US-002147023-NVSC2023US109457

PATIENT
  Sex: Male
  Weight: 172.37 kg

DRUGS (2)
  1. COSENTYX [Suspect]
     Active Substance: SECUKINUMAB
     Indication: Psoriasis
     Dosage: UNK
     Route: 065
  2. TERBINAFINE [Suspect]
     Active Substance: TERBINAFINE
     Indication: Psoriasis
     Dosage: UNK
     Route: 065

REACTIONS (7)
  - Rebound psoriasis [Unknown]
  - Skin exfoliation [Unknown]
  - Erythema [Unknown]
  - Dry skin [Unknown]
  - Pruritus [Unknown]
  - Fungal skin infection [Unknown]
  - Drug ineffective [Unknown]
